FAERS Safety Report 8336213-6 (Version None)
Quarter: 2012Q2

REPORT INFORMATION
  Report Type: 
  Country: None (occurrence: None)
  Receive Date: 20120504
  Receipt Date: 20120426
  Transmission Date: 20120825
  Serious: Yes (Other)
  Sender: FDA-Public Use
  Company Number: BR-BAYER-2011-115025

PATIENT
  Age: 42 Year
  Sex: Female

DRUGS (2)
  1. BETASERON [Suspect]
     Dosage: UNK
  2. BETASERON [Suspect]
     Indication: MULTIPLE SCLEROSIS
     Dosage: 8 MIU, QOD
     Route: 058
     Dates: start: 20111112, end: 20111124

REACTIONS (10)
  - ABDOMINAL PAIN UPPER [None]
  - RETCHING [None]
  - WEIGHT DECREASED [None]
  - NECK PAIN [None]
  - NAUSEA [None]
  - BACK PAIN [None]
  - DECREASED APPETITE [None]
  - HEADACHE [None]
  - DYSENTERY [None]
  - PAIN IN EXTREMITY [None]
